FAERS Safety Report 7187655-6 (Version None)
Quarter: 2010Q4

REPORT INFORMATION
  Report Type: 
  Country: None (occurrence: None)
  Receive Date: 20101222
  Receipt Date: 20100702
  Transmission Date: 20110411
  Serious: No
  Sender: FDA-Public Use
  Company Number: US-AMGEN-KDL421957

PATIENT

DRUGS (11)
  1. ENBREL [Suspect]
     Indication: PRODUCT USED FOR UNKNOWN INDICATION
     Dosage: 50 MG, 2 TIMES/WK
     Route: 058
  2. ALISKIREN [Concomitant]
     Dosage: 300 MG, UNK
  3. LISINOPRIL [Concomitant]
     Dosage: 20 MG, UNK
  4. NADOLOL [Concomitant]
     Dosage: 20 MG, UNK
  5. CYANOCOBALAMIN [Concomitant]
     Dosage: 500 A?G, UNK
  6. ASCORBIC ACID [Concomitant]
     Dosage: 500 MG, UNK
  7. DILTIAZEM HYDROCHLORIDE [Concomitant]
     Dosage: 240 MG, UNK
  8. LANSOPRAZOLE [Concomitant]
     Dosage: 15 MG, UNK
  9. CHLORTHALIDONE [Concomitant]
     Dosage: 25 MG, UNK
  10. HYDROCORTISONE [Concomitant]
     Dosage: 2.5 %, UNK
  11. ACETYLSALICYLIC ACID [Concomitant]
     Dosage: 81 MG, UNK

REACTIONS (1)
  - DIZZINESS [None]
